FAERS Safety Report 8062442-5 (Version None)
Quarter: 2012Q1

REPORT INFORMATION
  Report Type: 
  Country: None (occurrence: None)
  Receive Date: 20120123
  Receipt Date: 20120110
  Transmission Date: 20120608
  Serious: Yes (Death, Hospitalization)
  Sender: FDA-Public Use
  Company Number: JP-ACTELION-A-CH2011-50788

PATIENT
  Sex: Male
  Weight: 64 kg

DRUGS (14)
  1. TRACLEER [Suspect]
     Dosage: 125 MG, BID
     Route: 048
     Dates: start: 20100226, end: 20100322
  2. TRACLEER [Suspect]
     Dosage: 125 MG, BID
     Route: 048
     Dates: start: 20100408, end: 20110731
  3. MAGNESIUM OXIDE [Concomitant]
  4. INSULIN LISPRO [Concomitant]
  5. TRACLEER [Suspect]
     Indication: PULMONARY ARTERIAL HYPERTENSION
     Dosage: 62.5 MG, BID
     Route: 048
     Dates: start: 20100128, end: 20100225
  6. AMBROXOL HYDROCHLORIDE [Concomitant]
  7. TRACLEER [Suspect]
     Dosage: 62.5 MG, BID
     Route: 048
     Dates: start: 20100401, end: 20100407
  8. SULFAMETHOXAZOLE AND TRIMETHOPRIM [Concomitant]
  9. GLUCOS [Concomitant]
  10. INSULIN HUMAN [Concomitant]
  11. OXYGEN [Concomitant]
  12. PREDNISOLONE [Suspect]
     Dosage: UNK , UNK
  13. REBAMIPIDE [Concomitant]
  14. FUDOSTEINE [Concomitant]

REACTIONS (6)
  - RESPIRATORY DISORDER [None]
  - GAMMA-GLUTAMYLTRANSFERASE INCREASED [None]
  - DYSPNOEA [None]
  - INTERSTITIAL LUNG DISEASE [None]
  - WHITE BLOOD CELL COUNT INCREASED [None]
  - CARDIAC FAILURE [None]
